FAERS Safety Report 18492341 (Version 1)
Quarter: 2020Q4

REPORT INFORMATION
  Report Type: Report from Study
  Country: AU (occurrence: AU)
  Receive Date: 20201111
  Receipt Date: 20201111
  Transmission Date: 20210114
  Serious: Yes (Hospitalization)
  Sender: FDA-Public Use
  Company Number: AU-VERTEX PHARMACEUTICALS-2020-021864

PATIENT
  Age: 16 Year
  Sex: Female
  Weight: 40 kg

DRUGS (13)
  1. CEFTAZIDIME. [Concomitant]
     Active Substance: CEFTAZIDIME
     Indication: CYSTIC FIBROSIS LUNG
     Dosage: 4 GRAM, TID
     Route: 042
     Dates: start: 20201102
  2. HEPARINISED SALINE [Concomitant]
     Active Substance: HEPARIN SODIUM
     Dosage: 2 MILLILITER, PRN
     Route: 042
     Dates: start: 20201102
  3. CREON [Concomitant]
     Active Substance: PANCRELIPASE AMYLASE\PANCRELIPASE LIPASE\PANCRELIPASE PROTEASE
     Indication: PANCREATIC FAILURE
     Dosage: 25,000/10,000 DF, PRN
     Route: 048
     Dates: start: 200405
  4. ACTRAPID [Concomitant]
     Active Substance: INSULIN HUMAN
     Indication: CYSTIC FIBROSIS RELATED DIABETES
     Dosage: 8 UT, QD
     Route: 058
     Dates: start: 201909
  5. PARACETAMOL [Concomitant]
     Active Substance: ACETAMINOPHEN
     Indication: PAIN
     Dosage: 500 MG, QID
     Route: 048
     Dates: start: 20201102
  6. VX-445/VX-661/VX-770 [Suspect]
     Active Substance: ELEXACAFTOR\IVACAFTOR\TEZACAFTOR
     Indication: CYSTIC FIBROSIS
     Dosage: 100MG ELX/50MG TEZ/75MG IVA AND 150 MG IVA, FREQ UNK
     Route: 048
     Dates: start: 20200722, end: 20201019
  7. PROTAPHANE [Concomitant]
     Active Substance: INSULIN HUMAN
     Indication: CYSTIC FIBROSIS RELATED DIABETES
     Dosage: 52 UT, PRN
     Route: 058
     Dates: start: 20200712
  8. TOBRAMYCIN. [Concomitant]
     Active Substance: TOBRAMYCIN
     Indication: CYSTIC FIBROSIS LUNG
     Dosage: 237 MG, QD
     Route: 042
     Dates: start: 20201102
  9. VENTOLIN [Concomitant]
     Active Substance: ALBUTEROL SULFATE
     Indication: CYSTIC FIBROSIS LUNG
     Dosage: 4-6 PUFFS, BID
     Dates: start: 2009
  10. HYPERTONIC SALINE SOLUTION [Concomitant]
     Active Substance: SODIUM CHLORIDE
     Indication: CYSTIC FIBROSIS LUNG
     Dosage: 5 MILLILITER, BID
     Route: 055
     Dates: start: 2008
  11. AZITHROMYCIN ANHYDROUS. [Concomitant]
     Active Substance: AZITHROMYCIN ANHYDROUS
     Indication: CYSTIC FIBROSIS LUNG
     Dosage: 250 MG, 3 TIMES A WEEK
     Route: 048
     Dates: start: 2006
  12. PULMOZYME [Concomitant]
     Active Substance: DORNASE ALFA
     Indication: CYSTIC FIBROSIS LUNG
     Dosage: 2.5 MILLILITER, QD
     Route: 055
     Dates: start: 2008
  13. NOVORAPID [Concomitant]
     Active Substance: INSULIN ASPART
     Indication: CYSTIC FIBROSIS RELATED DIABETES
     Dosage: WITH FOOD, PRN
     Route: 058
     Dates: start: 200606

REACTIONS (2)
  - Electrolyte imbalance [Not Recovered/Not Resolved]
  - Hyperglycaemia [Not Recovered/Not Resolved]

NARRATIVE: CASE EVENT DATE: 20201102
